FAERS Safety Report 21158604 (Version 2)
Quarter: 2022Q3

REPORT INFORMATION
  Report Type: Spontaneous
  Country: CA (occurrence: CA)
  Receive Date: 20220802
  Receipt Date: 20220923
  Transmission Date: 20221026
  Serious: Yes (Other)
  Sender: FDA-Public Use
  Company Number: CA-CELLTRION INC.-2022CA005612

PATIENT

DRUGS (11)
  1. INFLECTRA [Suspect]
     Active Substance: INFLIXIMAB-DYYB
     Indication: Rheumatoid arthritis
     Dosage: 3 MG/KG,0,2,6 WEEKS, THEN EVERY 8 WEEKS
     Route: 042
     Dates: start: 20220216, end: 20220330
  2. ATIVAN [Concomitant]
     Active Substance: LORAZEPAM
     Dosage: 1 MG,PRN  BEFORE NERVE BLOCKS
     Route: 060
  3. BILASTINE [Concomitant]
     Active Substance: BILASTINE
     Dosage: 20 MG, DAILY
  4. DILTIAZEM [Concomitant]
     Active Substance: DILTIAZEM
     Dosage: 240 MG , FREQUENCY: UNKNOWN
     Route: 065
  5. FAMOTIDINE [Concomitant]
     Active Substance: FAMOTIDINE
     Dosage: 20 MG, DAILY, 5 DAYS
  6. HYDROXYCHLOROQUINE [Concomitant]
     Active Substance: HYDROXYCHLOROQUINE
     Dosage: 1 DF,100 MG ONE DAY AND NEXT 300 MG ONCE DAILY
     Route: 065
  7. LEFLUNOMIDE [Concomitant]
     Active Substance: LEFLUNOMIDE
     Dosage: 20MG, 1X/DAY
     Route: 065
  8. NABILONE [Concomitant]
     Active Substance: NABILONE
     Dosage: 1MG,QHS
     Route: 065
  9. ACETAMINOPHEN\OXYCODONE HYDROCHLORIDE [Concomitant]
     Active Substance: ACETAMINOPHEN\OXYCODONE HYDROCHLORIDE
     Dosage: 1 DF,2 TABLETS PRN, 4X/DAY
     Route: 065
  10. PREDNISONE [Concomitant]
     Active Substance: PREDNISONE
     Dosage: 15 MG, 2X/DAY
  11. TRAZODONE [Concomitant]
     Active Substance: TRAZODONE HYDROCHLORIDE
     Dosage: 50 MG, QHS, PRN
     Route: 065

REACTIONS (11)
  - Eczema [Unknown]
  - Haemorrhage [Unknown]
  - Eczema [Not Recovered/Not Resolved]
  - Infusion related reaction [Not Recovered/Not Resolved]
  - Frustration tolerance decreased [Unknown]
  - Eating disorder [Unknown]
  - Speech disorder [Unknown]
  - Eyelid margin crusting [Unknown]
  - Dry skin [Unknown]
  - Rash macular [Unknown]
  - Drug ineffective [Unknown]

NARRATIVE: CASE EVENT DATE: 20220101
